FAERS Safety Report 6371459-8 (Version None)
Quarter: 2009Q3

REPORT INFORMATION
  Report Type: 
  Country: None (occurrence: None)
  Receive Date: 20090923
  Receipt Date: 20080513
  Transmission Date: 20100115
  Serious: Yes (Other)
  Sender: FDA-Public Use
  Company Number: US-ASTRAZENECA-2007UW13563

PATIENT
  Age: 86 Month
  Sex: Male
  Weight: 24 kg

DRUGS (10)
  1. SEROQUEL [Suspect]
     Indication: ATTENTION DEFICIT/HYPERACTIVITY DISORDER
     Dosage: 25 MG BID TO 50 MG TID
     Route: 048
     Dates: start: 20041112
  2. SEROQUEL [Suspect]
     Indication: AUTISM SPECTRUM DISORDER
     Dosage: 25 MG BID TO 50 MG TID
     Route: 048
     Dates: start: 20041112
  3. SEROQUEL [Suspect]
     Route: 048
     Dates: start: 20041201, end: 20051101
  4. SEROQUEL [Suspect]
     Route: 048
     Dates: start: 20041201, end: 20051101
  5. GEODON [Concomitant]
  6. HALDOL [Concomitant]
  7. RISPERDAL [Concomitant]
     Indication: AGITATION
     Route: 048
     Dates: start: 20041112
  8. THORAZINE [Concomitant]
     Indication: AGITATION
     Dates: start: 20041112
  9. ADDERALL XR 30 [Concomitant]
     Dates: start: 20051201
  10. ADDERALL XR 30 [Concomitant]
     Dosage: 5 MG TO 10 MG EVERY MORNING
     Route: 048

REACTIONS (2)
  - HYPERGLYCAEMIA [None]
  - TARDIVE DYSKINESIA [None]
